FAERS Safety Report 14433177 (Version 1)
Quarter: 2018Q1

REPORT INFORMATION
  Report Type: Spontaneous
  Country: US (occurrence: US)
  Receive Date: 20180124
  Receipt Date: 20180124
  Transmission Date: 20180509
  Serious: Yes (Hospitalization)
  Sender: FDA-Public Use
  Company Number: US-PIRAMAL CRITICAL CARE LIMITED-2017-PEL-003129

PATIENT

DRUGS (3)
  1. GABLOFEN [Suspect]
     Active Substance: BACLOFEN
     Indication: MUSCLE SPASTICITY
     Dosage: 1325 ?G, QD
     Route: 037
  2. GABLOFEN [Suspect]
     Active Substance: BACLOFEN
     Indication: BRAIN INJURY
  3. GABLOFEN [Suspect]
     Active Substance: BACLOFEN
     Indication: HEAD INJURY

REACTIONS (6)
  - Respiratory tract infection [Unknown]
  - Device malfunction [Recovered/Resolved]
  - Pneumonia [Unknown]
  - Seizure [Unknown]
  - Respiratory failure [Unknown]
  - Influenza [Unknown]

NARRATIVE: CASE EVENT DATE: 20170724
